FAERS Safety Report 23548674 (Version 2)
Quarter: 2024Q1

REPORT INFORMATION
  Report Type: Spontaneous
  Country: IN (occurrence: IN)
  Receive Date: 20240221
  Receipt Date: 20240226
  Transmission Date: 20240410
  Serious: Yes (Other)
  Sender: FDA-Public Use
  Company Number: IN-MLMSERVICE-20240212-4825876-1

PATIENT
  Age: 21 Year
  Sex: Male

DRUGS (4)
  1. PREDNISOLONE [Suspect]
     Active Substance: PREDNISOLONE
     Indication: Still^s disease
     Dosage: 1 MG/KG
  2. METHYLPREDNISOLONE SODIUM SUCCINATE [Suspect]
     Active Substance: METHYLPREDNISOLONE SODIUM SUCCINATE
     Indication: Still^s disease
     Dosage: 1 G (PULSE DOSE)
  3. HYDROXYCHLOROQUINE [Suspect]
     Active Substance: HYDROXYCHLOROQUINE
     Indication: Still^s disease
     Dosage: 200 MG, 2X/DAY
  4. METHOTREXATE SODIUM [Suspect]
     Active Substance: METHOTREXATE SODIUM
     Indication: Still^s disease
     Dosage: 15 MG, WEEKLY

REACTIONS (2)
  - Tuberculosis [Recovering/Resolving]
  - Off label use [Unknown]
